FAERS Safety Report 15863254 (Version 1)
Quarter: 2018Q4

REPORT INFORMATION
  Report Type: Spontaneous
  Country: US (occurrence: US)
  Receive Date: 20181231
  Receipt Date: 20181231
  Transmission Date: 20190205
  Serious: Yes (Life-Threatening, Other)
  Sender: FDA-Public Use
  Company Number: None

PATIENT
  Age: 62 Year
  Sex: Male
  Weight: 55 kg

DRUGS (1)
  1. PARSABIV [Suspect]
     Active Substance: ETELCALCETIDE HYDROCHLORIDE
     Indication: HYPERPARATHYROIDISM SECONDARY
     Dosage: ?          OTHER ROUTE:INTRAVENOUS PUSH?
     Dates: start: 20180427, end: 20180502

REACTIONS (3)
  - Heart rate increased [None]
  - Blood pressure increased [None]
  - Chest pain [None]

NARRATIVE: CASE EVENT DATE: 20180502
